FAERS Safety Report 13188156 (Version 1)
Quarter: 2017Q1

REPORT INFORMATION
  Report Type: Spontaneous
  Country: US (occurrence: US)
  Receive Date: 20170203
  Receipt Date: 20170203
  Transmission Date: 20170428
  Serious: Yes (Disabling, Other)
  Sender: FDA-Public Use
  Company Number: None

PATIENT
  Age: 32 Year
  Sex: Female
  Weight: 63 kg

DRUGS (5)
  1. PEXEVA [Suspect]
     Active Substance: PAROXETINE MESYLATE
     Indication: OBSESSIVE-COMPULSIVE DISORDER
     Dates: start: 20131127, end: 20140627
  2. MULTIVITAMIN [Concomitant]
     Active Substance: VITAMINS
  3. SELENIUM [Concomitant]
     Active Substance: SELENIUM
  4. FISH OIL [Concomitant]
     Active Substance: FISH OIL
  5. N-ACETYL CISTEINE [Concomitant]

REACTIONS (11)
  - Pregnancy [None]
  - Blood cholesterol increased [None]
  - Withdrawal syndrome [None]
  - Hepatic enzyme increased [None]
  - Cholestasis [None]
  - Postpartum disorder [None]
  - Liver injury [None]
  - Autism [None]
  - Weight increased [None]
  - Anxiety [None]
  - Developmental delay [None]

NARRATIVE: CASE EVENT DATE: 20140515
